FAERS Safety Report 5749004-7 (Version None)
Quarter: 2008Q2

REPORT INFORMATION
  Report Type: 
  Country: None (occurrence: None)
  Receive Date: 20080527
  Receipt Date: 20080515
  Transmission Date: 20081010
  Serious: Yes (Death)
  Sender: FDA-Public Use
  Company Number: NL-JNJFOC-20080504247

PATIENT
  Age: 54 Year
  Sex: Male

DRUGS (4)
  1. RISPERIDONE [Suspect]
     Indication: SCHIZOPHRENIA, PARANOID TYPE
  2. LISINOPRIL [Concomitant]
  3. FLUVOXAMIN [Concomitant]
  4. GLYBURIDE [Concomitant]

REACTIONS (1)
  - CARDIAC FAILURE [None]
